FAERS Safety Report 13984479 (Version 2)
Quarter: 2017Q3

REPORT INFORMATION
  Report Type: Spontaneous
  Country: DE (occurrence: DE)
  Receive Date: 20170918
  Receipt Date: 20170926
  Transmission Date: 20171128
  Serious: Yes (Other)
  Sender: FDA-Public Use
  Company Number: DE-ABBVIE-17P-062-2102017-00

PATIENT
  Age: 71 Year
  Sex: Male

DRUGS (4)
  1. VENETOCLAX. [Suspect]
     Active Substance: VENETOCLAX
     Route: 048
     Dates: start: 201709
  2. VENETOCLAX. [Suspect]
     Active Substance: VENETOCLAX
     Indication: CHRONIC LYMPHOCYTIC LEUKAEMIA
     Route: 048
     Dates: start: 2016, end: 2016
  3. VENETOCLAX. [Suspect]
     Active Substance: VENETOCLAX
     Dosage: ATTEMPT TO INCREASE THE DOSE
     Route: 048
     Dates: start: 201709, end: 201709
  4. VENETOCLAX. [Suspect]
     Active Substance: VENETOCLAX
     Route: 048
     Dates: start: 2016, end: 201610

REACTIONS (4)
  - Neutropenia [Unknown]
  - Malignant neoplasm progression [Unknown]
  - Fall [Unknown]
  - Febrile infection [Unknown]

NARRATIVE: CASE EVENT DATE: 201610
